FAERS Safety Report 10052510 (Version 1)
Quarter: 2014Q2

REPORT INFORMATION
  Report Type: Spontaneous
  Country: CN (occurrence: CN)
  Receive Date: 20140402
  Receipt Date: 20140402
  Transmission Date: 20141212
  Serious: Yes (Death, Hospitalization, Other)
  Sender: FDA-Public Use
  Company Number: CN-SA-2014SA038274

PATIENT
  Age: 23 Year
  Sex: Male
  Weight: 65 kg

DRUGS (2)
  1. CEREZYME [Suspect]
     Indication: GAUCHER^S DISEASE
     Dosage: 4 VIALS PER MONTH
     Route: 042
     Dates: start: 20090908
  2. CEREZYME [Suspect]
     Indication: GAUCHER^S DISEASE
     Dosage: 5 VIALS PER MONTH
     Route: 042
     Dates: start: 20131218, end: 20140305

REACTIONS (5)
  - Death [Fatal]
  - Platelet count decreased [Not Recovered/Not Resolved]
  - Haematemesis [Unknown]
  - Lung infection [Unknown]
  - Organ failure [Unknown]
